FAERS Safety Report 9849390 (Version 1)
Quarter: 2014Q1

REPORT INFORMATION
  Report Type: Spontaneous
  Country: US (occurrence: US)
  Receive Date: 20140128
  Receipt Date: 20140128
  Transmission Date: 20141002
  Serious: Yes (Death, Other)
  Sender: FDA-Public Use
  Company Number: US-JNJFOC-20140112498

PATIENT
  Sex: 0

DRUGS (4)
  1. CLADRIBINE [Suspect]
     Indication: HAIRY CELL LEUKAEMIA
     Dosage: 7-DAY CONTINUOUS INTRAVENOUS INFUSION
     Route: 042
  2. RITUXIMAB [Suspect]
     Indication: HAIRY CELL LEUKAEMIA
     Route: 065
  3. INTERFERON [Suspect]
     Indication: HAIRY CELL LEUKAEMIA
     Route: 065
  4. PENTOSTATIN [Suspect]
     Indication: HAIRY CELL LEUKAEMIA
     Route: 065

REACTIONS (4)
  - Death [Fatal]
  - Sepsis [Fatal]
  - Hairy cell leukaemia [Unknown]
  - Drug ineffective [Unknown]
